FAERS Safety Report 17044970 (Version 1)
Quarter: 2019Q4

REPORT INFORMATION
  Report Type: Spontaneous
  Country: US (occurrence: US)
  Receive Date: 20191118
  Receipt Date: 20191118
  Transmission Date: 20200122
  Serious: No
  Sender: FDA-Public Use
  Company Number: US-SA-2019SA311532

PATIENT
  Sex: Female

DRUGS (3)
  1. PRALUENT [Suspect]
     Active Substance: ALIROCUMAB
     Dosage: UNK
  2. PRALUENT [Suspect]
     Active Substance: ALIROCUMAB
     Dosage: UNK
  3. ROSUVASTATIN. [Concomitant]
     Active Substance: ROSUVASTATIN

REACTIONS (9)
  - Diarrhoea [Unknown]
  - Arthralgia [Unknown]
  - Malaise [Unknown]
  - Blood test abnormal [Unknown]
  - Rhinorrhoea [Unknown]
  - Nausea [Unknown]
  - Tongue discomfort [Unknown]
  - Eye discharge [Unknown]
  - Eructation [Unknown]

NARRATIVE: CASE EVENT DATE: 20191101
